FAERS Safety Report 4645111-0 (Version None)
Quarter: 2005Q2

REPORT INFORMATION
  Report Type: 
  Country: None (occurrence: None)
  Receive Date: 20050422
  Receipt Date: 20050418
  Transmission Date: 20051028
  Serious: Yes (Death)
  Sender: FDA-Public Use
  Company Number: 213579

PATIENT
  Age: 67 Year
  Sex: Male

DRUGS (2)
  1. RITUXAN [Suspect]
     Indication: CHRONIC LYMPHOCYTIC LEUKAEMIA
     Dosage: 375 MG/M2, INTRAVENOUS
     Route: 042
     Dates: start: 20040112, end: 20040628
  2. FLUDARA [Suspect]
     Indication: CHRONIC LYMPHOCYTIC LEUKAEMIA
     Dosage: 25 MG/M2, INTRAVENOUS
     Route: 042
     Dates: start: 20040112, end: 20040702

REACTIONS (1)
  - DEATH [None]
